FAERS Safety Report 16444368 (Version 2)
Quarter: 2019Q3

REPORT INFORMATION
  Report Type: Spontaneous
  Country: JP (occurrence: JP)
  Receive Date: 20190618
  Receipt Date: 20190708
  Transmission Date: 20191004
  Serious: Yes (Hospitalization, Other)
  Sender: FDA-Public Use
  Company Number: JP-B.I. PHARMACEUTICALS,INC./RIDGEFIELD-2019-NB-002660

PATIENT
  Age: 7 Decade
  Sex: Male

DRUGS (1)
  1. PRAZAXA [Suspect]
     Active Substance: DABIGATRAN ETEXILATE MESYLATE
     Indication: ATRIAL FIBRILLATION
     Route: 048

REACTIONS (4)
  - Pneumonia aspiration [Unknown]
  - Oesophageal squamous cell carcinoma [Unknown]
  - Disseminated intravascular coagulation [Recovered/Resolved]
  - Haematoma muscle [Recovered/Resolved]
